FAERS Safety Report 16875616 (Version 1)
Quarter: 2019Q4

REPORT INFORMATION
  Report Type: Spontaneous
  Country: US (occurrence: US)
  Receive Date: 20191002
  Receipt Date: 20191002
  Transmission Date: 20200122
  Serious: Yes (Other)
  Sender: FDA-Public Use
  Company Number: US-PACIRA-201900308

PATIENT

DRUGS (4)
  1. BUPIVACAINE. [Suspect]
     Active Substance: BUPIVACAINE
     Indication: PAIN MANAGEMENT
     Dosage: 1 MG/KG
  2. COX II NSAID [Concomitant]
     Indication: THROMBOSIS PROPHYLAXIS
     Dosage: PRE-OP AND CONTINUED FOR 4 WEEKS
     Route: 065
  3. EXPAREL [Suspect]
     Active Substance: BUPIVACAINE
     Indication: PAIN MANAGEMENT
     Dosage: 20 ML (266 MG) MIXED WITH SALINE
  4. KETOROLAC TROMETHAMINE. [Concomitant]
     Active Substance: KETOROLAC TROMETHAMINE
     Indication: PAIN MANAGEMENT
     Dosage: FOR THE FIRST 24 HOURS
     Route: 065

REACTIONS (8)
  - Urinary retention [Unknown]
  - Disorientation [Unknown]
  - Pulmonary embolism [Unknown]
  - Nausea [Unknown]
  - Vomiting [Unknown]
  - Dizziness [Unknown]
  - Pruritus [Unknown]
  - Deep vein thrombosis [Unknown]
